FAERS Safety Report 15757168 (Version 2)
Quarter: 2018Q4

REPORT INFORMATION
  Report Type: Spontaneous
  Country: NL (occurrence: NL)
  Receive Date: 20181224
  Receipt Date: 20181224
  Transmission Date: 20190205
  Serious: Yes (Death)
  Sender: FDA-Public Use
  Company Number: PHHY2018NL193758

PATIENT
  Sex: Female

DRUGS (1)
  1. DICLOFENAC [Suspect]
     Active Substance: DICLOFENAC
     Indication: HERNIA
     Dosage: 75 MG, BID
     Route: 065
     Dates: start: 20181109

REACTIONS (1)
  - Anaphylactic reaction [Fatal]
